FAERS Safety Report 5066515-0 (Version None)
Quarter: 2006Q3

REPORT INFORMATION
  Report Type: 
  Country: None (occurrence: None)
  Receive Date: 20060728
  Receipt Date: 20060728
  Transmission Date: 20061208
  Serious: Yes (Life-Threatening, Other)
  Sender: FDA-Public Use
  Company Number: None

PATIENT
  Age: 54 Year
  Sex: Male
  Weight: 74.8 kg

DRUGS (8)
  1. ANTITHYMOCYTE GLOBULIN, RABBIT 25 MG GENZYME [Suspect]
     Indication: PANCYTOPENIA
     Dosage: 250MG  DAILY  IV
     Route: 042
     Dates: start: 20051018, end: 20051022
  2. ANTITHYMOCYTE GLOBULIN, RABBIT 25 MG GENZYME [Suspect]
     Indication: PAROXYSMAL NOCTURNAL HAEMOGLOBINURIA
     Dosage: 250MG  DAILY  IV
     Route: 042
     Dates: start: 20051018, end: 20051022
  3. NEXIUM [Concomitant]
  4. ZOLPIDEM TARTRATE [Concomitant]
  5. ACETAMINOPHEN [Concomitant]
  6. DOCUSATE SODIUM [Concomitant]
  7. FERROUS SULFATE TAB [Concomitant]
  8. FOLIC ACID [Concomitant]

REACTIONS (2)
  - BRADYCARDIA [None]
  - INFUSION RELATED REACTION [None]
